FAERS Safety Report 5650519-0 (Version None)
Quarter: 2008Q1

REPORT INFORMATION
  Report Type: 
  Country: None (occurrence: None)
  Receive Date: 20080305
  Receipt Date: 20080228
  Transmission Date: 20080703
  Serious: Yes (Hospitalization)
  Sender: FDA-Public Use
  Company Number: PHRM2008FR00932

PATIENT
  Age: 29 Year
  Sex: Female

DRUGS (3)
  1. VOLTAREN [Suspect]
     Dosage: 75 MG, ONCE/SINGLE
     Route: 048
     Dates: start: 20071212, end: 20071212
  2. IXPRIM [Suspect]
     Dosage: 2 DF, ONCE/SINGLE
     Route: 048
     Dates: start: 20071212, end: 20071212
  3. SOTALOL HCL [Concomitant]
     Indication: EXTRASYSTOLES
     Dosage: 40 MG, TID
     Route: 048
     Dates: start: 20070701

REACTIONS (9)
  - ANGIOEDEMA [None]
  - ASTHMA [None]
  - BLOOD PRESSURE SYSTOLIC DECREASED [None]
  - GENERALISED ERYTHEMA [None]
  - MALAISE [None]
  - PRURITUS [None]
  - SENSE OF OPPRESSION [None]
  - SHOCK [None]
  - WHEEZING [None]
